FAERS Safety Report 6449028-0 (Version None)
Quarter: 2009Q4

REPORT INFORMATION
  Report Type: 
  Country: None (occurrence: None)
  Receive Date: 20091120
  Receipt Date: 20091112
  Transmission Date: 20100525
  Serious: Yes (Other)
  Sender: FDA-Public Use
  Company Number: B0603650A

PATIENT
  Sex: Female

DRUGS (1)
  1. AMOXICILLIN [Suspect]
     Route: 048

REACTIONS (3)
  - DYSGEUSIA [None]
  - HYPOAESTHESIA ORAL [None]
  - PRODUCT QUALITY ISSUE [None]
